FAERS Safety Report 20613453 (Version 1)
Quarter: 2022Q1

REPORT INFORMATION
  Report Type: Spontaneous
  Country: GB (occurrence: GB)
  Receive Date: 20220319
  Receipt Date: 20220319
  Transmission Date: 20220423
  Serious: Yes (Other)
  Sender: FDA-Public Use
  Company Number: GB-MHRA-EMIS-1444-df33083b-d035-4a50-80bc-7c2df3cc76ae

PATIENT
  Age: 50 Year
  Sex: Male
  Weight: 98 kg

DRUGS (2)
  1. AMLODIPINE [Suspect]
     Active Substance: AMLODIPINE BESYLATE
     Indication: Product used for unknown indication
     Dosage: 5 MILLIGRAM, ONCE A DAY
     Route: 065
  2. MODERNA COVID-19 VACCINE [Concomitant]
     Active Substance: ELASOMERAN
     Indication: Product used for unknown indication
     Dosage: 0.25 MILLILITER(0.1MG/0.5ML DOSE DISPERSION INJECTION)
     Route: 030
     Dates: start: 20220111, end: 20220111

REACTIONS (2)
  - Suicidal ideation [Recovering/Resolving]
  - Condition aggravated [Unknown]
